FAERS Safety Report 6958416-5 (Version None)
Quarter: 2010Q3

REPORT INFORMATION
  Report Type: 
  Country: None (occurrence: None)
  Receive Date: 20100831
  Receipt Date: 20100824
  Transmission Date: 20110219
  Serious: Yes (Hospitalization)
  Sender: FDA-Public Use
  Company Number: US-ROCHE-694976

PATIENT
  Sex: Female

DRUGS (4)
  1. PEGINTERFERON ALFA-2A [Suspect]
     Indication: PRODUCT USED FOR UNKNOWN INDICATION
     Route: 065
     Dates: start: 20090928
  2. PEGINTERFERON ALFA-2A [Suspect]
     Route: 065
  3. RIBAVIRIN [Suspect]
     Indication: PRODUCT USED FOR UNKNOWN INDICATION
     Route: 065
     Dates: start: 20090928
  4. RIBAVIRIN [Suspect]
     Route: 065

REACTIONS (5)
  - ANAEMIA [None]
  - BONE MARROW FAILURE [None]
  - LYMPHADENOPATHY [None]
  - NEUTROPENIA [None]
  - RASH [None]
